FAERS Safety Report 15268369 (Version 1)
Quarter: 2018Q3

REPORT INFORMATION
  Report Type: Spontaneous
  Country: US (occurrence: US)
  Receive Date: 20180726
  Receipt Date: 20180726
  Transmission Date: 20181010
  Serious: Yes (Disabling)
  Sender: FDA-Public Use
  Company Number: None

PATIENT
  Age: 60 Year
  Sex: Female
  Weight: 70.65 kg

DRUGS (1)
  1. PRALUENT [Suspect]
     Active Substance: ALIROCUMAB
     Indication: BLOOD CHOLESTEROL INCREASED
     Dosage: ?          QUANTITY:1 INJECTION(S);OTHER FREQUENCY:ONCE EVERY TWO WEE;?
     Route: 030
     Dates: start: 20180706

REACTIONS (10)
  - Headache [None]
  - Cough [None]
  - Sneezing [None]
  - Ear pain [None]
  - Abdominal pain upper [None]
  - Vision blurred [None]
  - Oropharyngeal pain [None]
  - Pain [None]
  - Pulmonary congestion [None]
  - Joint stiffness [None]
